FAERS Safety Report 6834778-4 (Version None)
Quarter: 2010Q3

REPORT INFORMATION
  Report Type: 
  Country: None (occurrence: None)
  Receive Date: 20100712
  Receipt Date: 20070606
  Transmission Date: 20110219
  Serious: No
  Sender: FDA-Public Use
  Company Number: US-PFIZER INC-2007033422

PATIENT
  Sex: Female
  Weight: 77.11 kg

DRUGS (6)
  1. VARENICLINE [Suspect]
     Indication: SMOKING CESSATION THERAPY
     Route: 048
     Dates: start: 20070301
  2. CLONAZEPAM [Concomitant]
  3. FLONASE [Concomitant]
  4. CLARITIN [Concomitant]
  5. CELEXA [Concomitant]
  6. AMBIEN [Concomitant]

REACTIONS (1)
  - DRUG SCREEN POSITIVE [None]
